FAERS Safety Report 8912901 (Version 1)
Quarter: 2012Q4

REPORT INFORMATION
  Report Type: 
  Country: IN (occurrence: IN)
  Receive Date: 20121115
  Receipt Date: 20121115
  Transmission Date: 20130627
  Serious: Yes (Other)
  Sender: FDA-Public Use
  Company Number: IN-PERRIGO-12IN009601

PATIENT
  Sex: Male

DRUGS (2)
  1. FLAVOXATE HYDROCHLORIDE [Suspect]
     Indication: LOWER URINARY TRACT SYMPTOMS
     Dosage: 200 mg, tid
     Route: 048
  2. TAMSULOSIN [Suspect]
     Indication: LOWER URINARY TRACT SYMPTOMS
     Dosage: 0.4 mg, qd
     Route: 048

REACTIONS (2)
  - Erectile dysfunction [Unknown]
  - Ejaculation disorder [Unknown]
